FAERS Safety Report 6154086-7 (Version None)
Quarter: 2009Q2

REPORT INFORMATION
  Report Type: 
  Country: None (occurrence: None)
  Receive Date: 20090414
  Receipt Date: 20090406
  Transmission Date: 20091009
  Serious: Yes (Hospitalization)
  Sender: FDA-Public Use
  Company Number: FR-WYE-G03468009

PATIENT
  Age: 58 Year
  Sex: Female

DRUGS (3)
  1. EFFEXOR [Suspect]
     Dosage: 150 MG TOTAL DAILY
     Route: 048
     Dates: end: 20090401
  2. NISIS [Interacting]
     Dosage: UNKNOWN
  3. TRILEPTAL [Interacting]
     Dosage: UNKNOWN

REACTIONS (6)
  - CHEST DISCOMFORT [None]
  - DRUG INTERACTION [None]
  - HYPERTENSION [None]
  - HYPONATRAEMIA [None]
  - MALAISE [None]
  - PAIN IN EXTREMITY [None]
